FAERS Safety Report 20502312 (Version 3)
Quarter: 2022Q1

REPORT INFORMATION
  Report Type: Report from Study
  Country: BE (occurrence: BE)
  Receive Date: 20220222
  Receipt Date: 20220315
  Transmission Date: 20220423
  Serious: Yes (Other)
  Sender: FDA-Public Use
  Company Number: BE-DSJP-DSU-2022-104829

PATIENT
  Age: 32 Year
  Sex: Female
  Weight: 55 kg

DRUGS (12)
  1. ENHERTU [Suspect]
     Active Substance: FAM-TRASTUZUMAB DERUXTECAN-NXKI
     Indication: HER2 positive breast cancer
     Dosage: 5.4 MG/KG, ONCE EVERY 3 WK
     Route: 042
     Dates: start: 20211222, end: 20220202
  2. MEDROL [Concomitant]
     Active Substance: METHYLPREDNISOLONE
     Indication: Systemic lupus erythematosus
     Dosage: 8 MG, QD
     Route: 048
     Dates: start: 20131218
  3. PLAQUENIL [Concomitant]
     Active Substance: HYDROXYCHLOROQUINE SULFATE
     Indication: Systemic lupus erythematosus
     Dosage: 200 MG, BID
     Route: 048
     Dates: start: 20130128
  4. ASPIRIN [Concomitant]
     Active Substance: ASPIRIN
     Indication: Systemic lupus erythematosus
     Dosage: 80 MG, QD
     Route: 048
     Dates: start: 20171213
  5. AKYNZEO [Concomitant]
     Active Substance: NETUPITANT\PALONOSETRON HYDROCHLORIDE
     Indication: Nausea
     Dosage: 300 MG, CONCOMITANT TO ENHERTU CURES
     Route: 048
     Dates: start: 20220112, end: 20220202
  6. AKYNZEO [Concomitant]
     Active Substance: NETUPITANT\PALONOSETRON HYDROCHLORIDE
     Indication: Vomiting
  7. ZOFRAN [Concomitant]
     Active Substance: ONDANSETRON HYDROCHLORIDE
     Indication: Nausea
     Dosage: 8 MG, CONCOMITANT TO ENHERTU CURES
     Route: 048
     Dates: start: 20211222, end: 20220202
  8. ZOFRAN [Concomitant]
     Active Substance: ONDANSETRON HYDROCHLORIDE
     Indication: Vomiting
  9. LITICAN [ALIZAPRIDE HYDROCHLORIDE] [Concomitant]
     Indication: Nausea
     Dosage: 100 MG, CONCOMITANT TO ENHERTU CURES
     Route: 042
     Dates: start: 20211222, end: 20220202
  10. LITICAN [ALIZAPRIDE HYDROCHLORIDE] [Concomitant]
     Indication: Vomiting
  11. DEXAMETHASONE [Concomitant]
     Active Substance: DEXAMETHASONE
     Indication: Nausea
     Dosage: 20 MG, SINGLE
     Route: 048
     Dates: start: 20220202, end: 20220202
  12. DEXAMETHASONE [Concomitant]
     Active Substance: DEXAMETHASONE
     Indication: Vomiting

REACTIONS (1)
  - Interstitial lung disease [Recovering/Resolving]

NARRATIVE: CASE EVENT DATE: 20220203
